FAERS Safety Report 5843161-X (Version None)
Quarter: 2008Q3

REPORT INFORMATION
  Report Type: 
  Country: None (occurrence: None)
  Receive Date: 20080813
  Receipt Date: 20080729
  Transmission Date: 20090109
  Serious: Yes (Other)
  Sender: FDA-Public Use
  Company Number: PHHY2008DE16337

PATIENT
  Sex: Male

DRUGS (3)
  1. ZOMETA [Suspect]
     Indication: PLASMACYTOMA
     Dosage: UNK
     Dates: start: 20040101
  2. BENDAMUSTINE [Concomitant]
     Indication: PLASMACYTOMA
     Dosage: 6 CYCLES
     Route: 042
     Dates: start: 20050701, end: 20051101
  3. BENDAMUSTINE [Concomitant]
     Dosage: 5 CYCLES
     Route: 042
     Dates: start: 20070701, end: 20071001

REACTIONS (9)
  - BIOPSY BONE ABNORMAL [None]
  - GLAUCOMA [None]
  - JAW OPERATION [None]
  - OSTEONECROSIS [None]
  - PATHOLOGICAL FRACTURE [None]
  - PLASMACYTOMA [None]
  - RADIOTHERAPY [None]
  - SPLINT APPLICATION [None]
  - SURGERY [None]
